FAERS Safety Report 21839086 (Version 1)
Quarter: 2023Q1

REPORT INFORMATION
  Report Type: Spontaneous
  Country: US (occurrence: None)
  Receive Date: 20230108
  Receipt Date: 20230108
  Transmission Date: 20230417
  Serious: Yes (Life-Threatening, Hospitalization)
  Sender: FDA-Public Use
  Company Number: None

PATIENT
  Age: 62 Year
  Sex: Male

DRUGS (1)
  1. WARFARIN SODIUM [Suspect]
     Active Substance: WARFARIN SODIUM
     Indication: Atrial fibrillation
     Dosage: 7.5 MG EVERY DAY  PO
     Route: 048
     Dates: start: 20170131, end: 20221222

REACTIONS (2)
  - Abdominal wall haematoma [None]
  - Therapy cessation [None]

NARRATIVE: CASE EVENT DATE: 20221222
